FAERS Safety Report 11279416 (Version 3)
Quarter: 2015Q3

REPORT INFORMATION
  Report Type: Spontaneous
  Country: CH (occurrence: CH)
  Receive Date: 20150717
  Receipt Date: 20150731
  Transmission Date: 20151125
  Serious: Yes (Hospitalization, Other)
  Sender: FDA-Public Use
  Company Number: CH-JNJFOC-20150709329

PATIENT
  Age: 41 Year
  Sex: Male
  Weight: 87 kg

DRUGS (16)
  1. MERCAPTOPURINE. [Suspect]
     Active Substance: MERCAPTOPURINE
     Indication: CROHN^S DISEASE
     Route: 048
     Dates: start: 2004, end: 2006
  2. REMICADE [Suspect]
     Active Substance: INFLIXIMAB
     Indication: CROHN^S DISEASE
     Dosage: APPROXIMATELY 3 INFUSIONS IN TOTAL
     Route: 042
     Dates: start: 20010829, end: 20011010
  3. BUDESONIDE. [Concomitant]
     Active Substance: BUDESONIDE
     Indication: FISTULA
     Dosage: 2 MONTHS
     Route: 065
     Dates: start: 2001
  4. PREDNISONE. [Suspect]
     Active Substance: PREDNISONE
     Indication: PRODUCT USED FOR UNKNOWN INDICATION
     Dosage: 100  MG 2 WEEKS, THEN TAPPERED OFF THEREAFTER
     Route: 048
     Dates: start: 2001
  5. PREDNISONE. [Suspect]
     Active Substance: PREDNISONE
     Indication: PRODUCT USED FOR UNKNOWN INDICATION
     Dosage: 100  MG 2 WEEKS, THEN 50 MG TAPPERED OFF
     Route: 048
     Dates: start: 1998
  6. AZATHIOPRINE. [Suspect]
     Active Substance: AZATHIOPRINE
     Indication: CROHN^S DISEASE
     Dosage: INCREASED UP TO 300 MG, TAPERING OFF THEREAFTER AND SWITCHED TO MERCAPTOPURINE
     Route: 048
     Dates: start: 2001, end: 2002
  7. MERCAPTOPURINE. [Suspect]
     Active Substance: MERCAPTOPURINE
     Indication: CROHN^S DISEASE
     Route: 048
     Dates: start: 2010, end: 2011
  8. MERCAPTOPURINE. [Suspect]
     Active Substance: MERCAPTOPURINE
     Indication: CROHN^S DISEASE
     Route: 048
     Dates: start: 2002, end: 2003
  9. MERCAPTOPURINE. [Suspect]
     Active Substance: MERCAPTOPURINE
     Indication: CROHN^S DISEASE
     Route: 048
     Dates: start: 2009, end: 2010
  10. MERCAPTOPURINE. [Suspect]
     Active Substance: MERCAPTOPURINE
     Indication: CROHN^S DISEASE
     Dosage: TAPPERED OFF AND STOPPED
     Route: 048
     Dates: end: 2012
  11. PREDNISONE. [Suspect]
     Active Substance: PREDNISONE
     Indication: PRODUCT USED FOR UNKNOWN INDICATION
     Dosage: TAPPERED OFF DURING 10 WEEKS
     Route: 048
     Dates: start: 1996
  12. PREDNISONE. [Suspect]
     Active Substance: PREDNISONE
     Indication: PRODUCT USED FOR UNKNOWN INDICATION
     Dosage: TAPPERED OFF IN 5 WEEKS
     Route: 048
     Dates: start: 1993
  13. MESALAZINE [Concomitant]
     Active Substance: MESALAMINE
     Indication: FISTULA
     Route: 065
     Dates: start: 1993, end: 2001
  14. BUDESONIDE. [Concomitant]
     Active Substance: BUDESONIDE
     Indication: FISTULA
     Dosage: 3 MONTHS
     Route: 065
     Dates: start: 1998
  15. PREDNISONE. [Suspect]
     Active Substance: PREDNISONE
     Indication: PRODUCT USED FOR UNKNOWN INDICATION
     Dosage: TAPPERED OFF DURING 10 WEEKS
     Route: 048
     Dates: start: 1997
  16. BUDESONIDE. [Concomitant]
     Active Substance: BUDESONIDE
     Indication: FISTULA
     Dosage: 2 MONTHS
     Route: 065
     Dates: start: 1999

REACTIONS (4)
  - Hepatitis B [Unknown]
  - Hepatosplenic T-cell lymphoma [Not Recovered/Not Resolved]
  - Respiratory tract infection [Unknown]
  - Erysipelas [Unknown]

NARRATIVE: CASE EVENT DATE: 2014
